FAERS Safety Report 15428082 (Version 1)
Quarter: 2018Q3

REPORT INFORMATION
  Report Type: Spontaneous
  Country: US (occurrence: US)
  Receive Date: 20180926
  Receipt Date: 20180926
  Transmission Date: 20181010
  Serious: No
  Sender: FDA-Public Use
  Company Number: US-PRINSTON PHARMACEUTICAL INC.-2018PRN00461

PATIENT
  Sex: Female

DRUGS (1)
  1. VALSARTAN. [Suspect]
     Active Substance: VALSARTAN
     Dosage: 160 MG, 2X/DAY
     Dates: start: 2018, end: 2018

REACTIONS (4)
  - Fluid retention [Unknown]
  - Head discomfort [Unknown]
  - Headache [Unknown]
  - Papule [Recovered/Resolved]

NARRATIVE: CASE EVENT DATE: 2018
